FAERS Safety Report 16490601 (Version 1)
Quarter: 2019Q3

REPORT INFORMATION
  Report Type: Spontaneous
  Country: US (occurrence: US)
  Receive Date: 20190627
  Receipt Date: 20190627
  Transmission Date: 20191004
  Serious: Yes (Hospitalization)
  Sender: FDA-Public Use
  Company Number: None

PATIENT
  Age: 45 Year
  Sex: Female

DRUGS (1)
  1. CLINDAMYCIN 150MG RANBAXY [Suspect]
     Active Substance: CLINDAMYCIN PHOSPHATE
     Indication: TOOTH DISORDER
     Dosage: ?          QUANTITY:2 CAPSULE(S);?
     Route: 048
     Dates: start: 20110714, end: 20110722

REACTIONS (6)
  - Dizziness [None]
  - Therapy cessation [None]
  - Cerebrovascular accident [None]
  - Confusional state [None]
  - Irritability [None]
  - Product contamination [None]

NARRATIVE: CASE EVENT DATE: 20110722
